FAERS Safety Report 10020979 (Version 1)
Quarter: 2014Q1

REPORT INFORMATION
  Report Type: Spontaneous
  Country: US (occurrence: US)
  Receive Date: 20140319
  Receipt Date: 20140319
  Transmission Date: 20141002
  Serious: Yes (Other)
  Sender: FDA-Public Use
  Company Number: US-JNJFOC-20140306602

PATIENT
  Sex: Male
  Weight: 58.97 kg

DRUGS (4)
  1. XARELTO [Suspect]
     Indication: CEREBROVASCULAR ACCIDENT PROPHYLAXIS
     Route: 048
     Dates: start: 20131009
  2. XARELTO [Suspect]
     Indication: ATRIAL FLUTTER
     Route: 048
     Dates: start: 20131009
  3. LASIX [Concomitant]
     Indication: LUNG OPERATION
     Route: 048
     Dates: start: 1990
  4. POTASSIUM [Concomitant]
     Route: 048
     Dates: start: 1990

REACTIONS (3)
  - Cellulitis [Not Recovered/Not Resolved]
  - Pain in extremity [Unknown]
  - Limb discomfort [Recovered/Resolved]
